FAERS Safety Report 14794230 (Version 1)
Quarter: 2018Q2

REPORT INFORMATION
  Report Type: Spontaneous
  Country: GR (occurrence: GR)
  Receive Date: 20180423
  Receipt Date: 20180423
  Transmission Date: 20180711
  Serious: Yes (Other)
  Sender: FDA-Public Use
  Company Number: PHHY2018GR066901

PATIENT
  Age: 43 Year

DRUGS (10)
  1. CRIZOTINIB [Concomitant]
     Active Substance: CRIZOTINIB
     Indication: ADENOCARCINOMA
     Dosage: 250 MG, BID
     Route: 065
     Dates: start: 201211
  2. LORLATINIB [Suspect]
     Active Substance: LORLATINIB
     Indication: NERVOUS SYSTEM DISORDER
     Dosage: 100 MG, QD
     Route: 065
     Dates: start: 20171108
  3. FENOFIBRATE. [Concomitant]
     Active Substance: FENOFIBRATE
     Indication: PRODUCT USED FOR UNKNOWN INDICATION
     Dosage: 145 MG, QD
     Route: 065
     Dates: start: 20171124, end: 20180109
  4. ROSUVASTATIN. [Concomitant]
     Active Substance: ROSUVASTATIN
     Indication: PRODUCT USED FOR UNKNOWN INDICATION
     Dosage: 20 MG, QD
     Route: 065
     Dates: start: 20180110
  5. PRAVASTATIN. [Concomitant]
     Active Substance: PRAVASTATIN
     Indication: PRODUCT USED FOR UNKNOWN INDICATION
     Dosage: 40 MG, UNK
     Route: 065
     Dates: start: 20171124
  6. BEVACIZUMAB. [Concomitant]
     Active Substance: BEVACIZUMAB
     Dosage: UNK
     Route: 065
     Dates: start: 201708
  7. BEVACIZUMAB. [Concomitant]
     Active Substance: BEVACIZUMAB
     Indication: PRODUCT USED FOR UNKNOWN INDICATION
     Dosage: 10 MG/KG
     Route: 065
     Dates: start: 201707
  8. PRAVASTATIN. [Concomitant]
     Active Substance: PRAVASTATIN
     Dosage: 80 MG, UNK
     Route: 065
     Dates: end: 20180109
  9. FENOFIBRATE. [Concomitant]
     Active Substance: FENOFIBRATE
     Dosage: 145 MG, BID
     Route: 065
     Dates: start: 20180110
  10. ZYKADIA [Suspect]
     Active Substance: CERITINIB
     Indication: NERVOUS SYSTEM DISORDER
     Dosage: 450 MG, QD
     Route: 065
     Dates: start: 201704

REACTIONS (9)
  - Necrosis [Unknown]
  - Hypercholesterolaemia [Unknown]
  - Neurological decompensation [Unknown]
  - Pain in extremity [Recovering/Resolving]
  - Pain [Recovering/Resolving]
  - Musculoskeletal pain [Recovering/Resolving]
  - Motor dysfunction [Unknown]
  - Hypertriglyceridaemia [Unknown]
  - Product use in unapproved indication [Unknown]
